FAERS Safety Report 22295564 (Version 1)
Quarter: 2023Q2

REPORT INFORMATION
  Report Type: Spontaneous
  Country: US (occurrence: None)
  Receive Date: 20230505
  Receipt Date: 20230505
  Transmission Date: 20230722
  Serious: No
  Sender: FDA-Public Use
  Company Number: None

PATIENT
  Age: 80 Year
  Sex: Female
  Weight: 91.17 kg

DRUGS (10)
  1. PROMACTA [Suspect]
     Active Substance: ELTROMBOPAG OLAMINE
     Indication: Thrombocytopenia
     Dosage: FREQUENCY : DAILY;?
     Route: 048
  2. DOCUSATE [Concomitant]
     Active Substance: DOCUSATE
  3. ELIQUIS [Concomitant]
     Active Substance: APIXABAN
  4. FLOVENT [Concomitant]
  5. HYDROCHLOROTHIAZIDE [Concomitant]
     Active Substance: HYDROCHLOROTHIAZIDE
  6. LEVOTHYROXINE [Concomitant]
     Active Substance: LEVOTHYROXINE
  7. MICARDIS [Concomitant]
     Active Substance: TELMISARTAN
  8. PREDNISONE [Concomitant]
     Active Substance: PREDNISONE
  9. PROAIR [Concomitant]
  10. TIZANIDINE [Concomitant]
     Active Substance: TIZANIDINE

REACTIONS (2)
  - Platelet count abnormal [None]
  - Thrombosis [None]
